FAERS Safety Report 14515948 (Version 1)
Quarter: 2018Q1

REPORT INFORMATION
  Report Type: Spontaneous
  Country: US (occurrence: US)
  Receive Date: 20180211
  Receipt Date: 20180211
  Transmission Date: 20180509
  Serious: No
  Sender: FDA-Public Use
  Company Number: US-TEVA-2018-US-848417

PATIENT
  Sex: Female

DRUGS (1)
  1. BACITRACIN ZINC, NEOMYCIN, POLYMYXIN B [Suspect]
     Active Substance: BACITRACIN ZINC\NEOMYCIN SULFATE\POLYMYXIN B SULFATE
     Indication: ANORECTAL DISCOMFORT
     Route: 065
     Dates: start: 20180112

REACTIONS (1)
  - Application site pain [Not Recovered/Not Resolved]
